FAERS Safety Report 7999079-X (Version None)
Quarter: 2011Q4

REPORT INFORMATION
  Report Type: 
  Country: None (occurrence: None)
  Receive Date: 20111221
  Receipt Date: 20111028
  Transmission Date: 20120403
  Serious: Yes (Other)
  Sender: FDA-Public Use
  Company Number: US-PURDUE-USA-2011-0079850

PATIENT
  Sex: Female

DRUGS (1)
  1. OXYCONTIN [Suspect]
     Indication: PAIN
     Dosage: UNK
     Dates: start: 19990101, end: 20070523

REACTIONS (5)
  - DENTAL CARIES [None]
  - HALLUCINATION [None]
  - WEIGHT INCREASED [None]
  - DEPRESSION [None]
  - TOOTH EXTRACTION [None]
